FAERS Safety Report 18907325 (Version 3)
Quarter: 2022Q2

REPORT INFORMATION
  Report Type: Spontaneous
  Country: CH (occurrence: CH)
  Receive Date: 20210218
  Receipt Date: 20220608
  Transmission Date: 20220721
  Serious: Yes (Hospitalization)
  Sender: FDA-Public Use
  Company Number: None

PATIENT
  Age: 33 Year
  Sex: Male

DRUGS (17)
  1. ANTABUSE [Suspect]
     Active Substance: DISULFIRAM
     Dosage: 200 MILLIGRAM DAILY;
     Route: 048
     Dates: end: 202101
  2. ANTABUSE [Suspect]
     Active Substance: DISULFIRAM
     Route: 048
     Dates: start: 2021
  3. AUGMENTIN [Suspect]
     Active Substance: AMOXICILLIN\CLAVULANATE POTASSIUM
     Indication: Pneumonia
     Route: 065
     Dates: start: 20201214, end: 20201220
  4. HALDOL [Suspect]
     Active Substance: HALOPERIDOL
     Route: 065
     Dates: start: 202011, end: 20210107
  5. TRAZODONE HYDROCHLORIDE [Suspect]
     Active Substance: TRAZODONE HYDROCHLORIDE
     Dosage: 300 MILLIGRAM DAILY;
     Route: 048
     Dates: end: 202101
  6. TRAZODONE HYDROCHLORIDE [Suspect]
     Active Substance: TRAZODONE HYDROCHLORIDE
     Dosage: 100 MILLIGRAM DAILY;
     Route: 048
     Dates: start: 20210122, end: 20210209
  7. TRAZODONE HYDROCHLORIDE [Suspect]
     Active Substance: TRAZODONE HYDROCHLORIDE
     Dosage: 300 MILLIGRAM DAILY;
     Route: 048
     Dates: start: 2021
  8. ABILIFY [Suspect]
     Active Substance: ARIPIPRAZOLE
     Route: 030
     Dates: start: 201906, end: 20210107
  9. ABILIFY [Suspect]
     Active Substance: ARIPIPRAZOLE
     Dosage: 400MG, FREQUENCY TIME 1 IN 1MONTHS
     Route: 058
     Dates: start: 20210916
  10. TOPAMAX [Suspect]
     Active Substance: TOPIRAMATE
     Dosage: 100 MILLIGRAM DAILY;
     Route: 048
     Dates: end: 202101
  11. TOPAMAX [Suspect]
     Active Substance: TOPIRAMATE
     Dosage: 100 MILLIGRAM DAILY;
     Route: 048
     Dates: start: 2021
  12. LEVOMEPROMAZINE [Suspect]
     Active Substance: LEVOMEPROMAZINE
     Dosage: AS NECESSARY
     Route: 065
     Dates: start: 202011, end: 202101
  13. BUDESONIDE [Concomitant]
     Active Substance: BUDESONIDE
     Dosage: 9 MILLIGRAM DAILY; 9MG, FREQUENCY TIME :1DAYS
     Route: 048
  14. EZETIMIBE\SIMVASTATIN [Concomitant]
     Active Substance: EZETIMIBE\SIMVASTATIN
     Route: 065
     Dates: end: 202101
  15. IBUPROFEN [Concomitant]
     Active Substance: IBUPROFEN
     Dosage: IN TOTAL
     Route: 065
     Dates: start: 202101, end: 202101
  16. ACETAMINOPHEN [Concomitant]
     Active Substance: ACETAMINOPHEN
     Dosage: AS NECESSARY
     Route: 065
     Dates: start: 202012, end: 202101
  17. URSODIOL [Concomitant]
     Active Substance: URSODIOL
     Dosage: FREQUENCY TIME 2DAYS, 250MG
     Route: 048

REACTIONS (2)
  - Mixed liver injury [Recovered/Resolved]
  - Bradycardia [Recovered/Resolved]

NARRATIVE: CASE EVENT DATE: 20210101
